FAERS Safety Report 23726406 (Version 2)
Quarter: 2024Q2

REPORT INFORMATION
  Report Type: Spontaneous
  Country: CA (occurrence: None)
  Receive Date: 20240410
  Receipt Date: 20240412
  Transmission Date: 20240716
  Serious: Yes (Other)
  Sender: FDA-Public Use
  Company Number: 2024A082679

PATIENT
  Sex: Female

DRUGS (1)
  1. SYMBICORT [Suspect]
     Active Substance: BUDESONIDE\FORMOTEROL FUMARATE DIHYDRATE
     Dosage: UNKNOWN DOSAGE IN UNKNOWN FREQUENCY UNKNOWN
     Route: 055

REACTIONS (8)
  - Exposure to fungus [Unknown]
  - Exposure via inhalation [Unknown]
  - Product contamination microbial [Unknown]
  - Dyspnoea [Unknown]
  - Sputum discoloured [Unknown]
  - Cough [Unknown]
  - Asthma [Unknown]
  - Drug ineffective [Unknown]
